FAERS Safety Report 7414907-4 (Version None)
Quarter: 2011Q2

REPORT INFORMATION
  Report Type: 
  Country: None (occurrence: None)
  Receive Date: 20110414
  Receipt Date: 20110226
  Transmission Date: 20111010
  Serious: Yes (Other)
  Sender: FDA-Public Use
  Company Number: US-SANOFI-AVENTIS-2011SA022505

PATIENT
  Sex: Male

DRUGS (4)
  1. JANUVIA [Suspect]
     Route: 065
  2. ACTOS [Suspect]
     Route: 065
  3. GLIMEPIRIDE [Suspect]
     Route: 065
  4. METFORMIN [Suspect]
     Route: 065

REACTIONS (2)
  - ROAD TRAFFIC ACCIDENT [None]
  - HYPOGLYCAEMIA [None]
